FAERS Safety Report 13259599 (Version 6)
Quarter: 2017Q3

REPORT INFORMATION
  Report Type: Report from Study
  Country: US (occurrence: US)
  Receive Date: 20170222
  Receipt Date: 20170825
  Transmission Date: 20171127
  Serious: Yes (Hospitalization, Other)
  Sender: FDA-Public Use
  Company Number: US-BAYER-2017-007730

PATIENT
  Age: 55 Year
  Sex: Female
  Weight: 53.52 kg

DRUGS (11)
  1. ADEMPAS [Suspect]
     Active Substance: RIOCIGUAT
     Indication: PULMONARY ARTERIAL HYPERTENSION
     Dosage: UNK
     Dates: start: 20161228
  2. ADEMPAS [Suspect]
     Active Substance: RIOCIGUAT
     Indication: PULMONARY ARTERIAL HYPERTENSION
     Dosage: 0.5 MG, TID
     Route: 048
  3. ADEMPAS [Suspect]
     Active Substance: RIOCIGUAT
     Indication: PULMONARY ARTERIAL HYPERTENSION
     Dosage: 1MG IN AM, 0.5MG IN AFTERNOON, 1MG IN PM; TOTAL 2.5 MG DAILY
  4. ADEMPAS [Suspect]
     Active Substance: RIOCIGUAT
     Indication: PULMONARY ARTERIAL HYPERTENSION
     Dosage: 0.5 MG, TID
     Route: 048
  5. ADEMPAS [Suspect]
     Active Substance: RIOCIGUAT
     Indication: PULMONARY ARTERIAL HYPERTENSION
     Dosage: 1.0 MG, TID
     Route: 048
  6. ADEMPAS [Suspect]
     Active Substance: RIOCIGUAT
     Indication: PULMONARY ARTERIAL HYPERTENSION
     Dosage: 1.0 MG, TID
     Route: 048
  7. DIGOXIN. [Concomitant]
     Active Substance: DIGOXIN
     Dosage: UNK
  8. ADEMPAS [Suspect]
     Active Substance: RIOCIGUAT
     Indication: PULMONARY ARTERIAL HYPERTENSION
     Dosage: 0.5 MG, TID
     Route: 048
  9. ADEMPAS [Suspect]
     Active Substance: RIOCIGUAT
     Indication: PULMONARY ARTERIAL HYPERTENSION
     Dosage: 0.5 MG, BID
     Route: 048
  10. ADEMPAS [Suspect]
     Active Substance: RIOCIGUAT
     Indication: PULMONARY ARTERIAL HYPERTENSION
     Dosage: 0.5 MG, BID
     Route: 048
  11. DILTIAZEM. [Concomitant]
     Active Substance: DILTIAZEM
     Dosage: UNK

REACTIONS (33)
  - Nasopharyngitis [Unknown]
  - Headache [Not Recovered/Not Resolved]
  - Dyspnoea [Unknown]
  - Bronchitis [Unknown]
  - Blood pressure decreased [None]
  - Inappropriate schedule of drug administration [None]
  - Anxiety [Unknown]
  - Confusional state [Unknown]
  - Nasopharyngitis [None]
  - Intra-abdominal fluid collection [Unknown]
  - Blood pressure fluctuation [Unknown]
  - Headache [Unknown]
  - Hospitalisation [None]
  - Weight increased [Unknown]
  - Heart rate increased [Unknown]
  - Head discomfort [None]
  - Pelvic pain [None]
  - Localised oedema [Unknown]
  - Fatigue [Unknown]
  - Malaise [None]
  - Mood altered [Unknown]
  - Crying [Unknown]
  - Blood pressure increased [Unknown]
  - Dyspnoea [Recovering/Resolving]
  - Productive cough [Unknown]
  - Stress [Unknown]
  - Chest pain [Unknown]
  - Dyspnoea [Not Recovered/Not Resolved]
  - Abdominal distension [Recovering/Resolving]
  - Hypoxia [Not Recovered/Not Resolved]
  - Bronchitis [Unknown]
  - Dyspnoea [Unknown]
  - Haemoptysis [None]

NARRATIVE: CASE EVENT DATE: 2017
